FAERS Safety Report 5366119-6 (Version None)
Quarter: 2007Q2

REPORT INFORMATION
  Report Type: 
  Country: None (occurrence: None)
  Receive Date: 20070516
  Receipt Date: 20060516
  Transmission Date: 20071010
  Serious: Yes (Hospitalization)
  Sender: FDA-Public Use
  Company Number: 253480

PATIENT
  Age: 4 Year
  Sex: Male
  Weight: 15 kg

DRUGS (3)
  1. NOVOSEVEN [Suspect]
     Indication: HAEMOPHILIA B WITH ANTI FACTOR IX
     Dosage: SEE IMAGE
     Route: 042
     Dates: start: 20060501, end: 20060501
  2. NOVOSEVEN [Suspect]
     Indication: HAEMOPHILIA B WITH ANTI FACTOR IX
     Dosage: SEE IMAGE
     Route: 042
     Dates: start: 20040101
  3. PROCARDIA [Concomitant]

REACTIONS (1)
  - THERAPEUTIC RESPONSE DECREASED [None]
